FAERS Safety Report 6687879-8 (Version None)
Quarter: 2010Q2

REPORT INFORMATION
  Report Type: 
  Country: None (occurrence: None)
  Receive Date: 20100409
  Receipt Date: 20100204
  Transmission Date: 20101027
  Serious: Yes (Life-Threatening, Hospitalization, Other)
  Sender: FDA-Public Use
  Company Number: AE  2010-019

PATIENT
  Age: 61 Year
  Sex: Male
  Weight: 62.5964 kg

DRUGS (1)
  1. FAZACLO ODT [Suspect]
     Indication: SCHIZOPHRENIA
     Dosage: 200MG-400MG DAILY PO
     Route: 048
     Dates: start: 20091117, end: 20100101

REACTIONS (1)
  - CONVULSION [None]
